FAERS Safety Report 23883277 (Version 1)
Quarter: 2024Q2

REPORT INFORMATION
  Report Type: Spontaneous
  Country: BR (occurrence: BR)
  Receive Date: 20240522
  Receipt Date: 20240522
  Transmission Date: 20240716
  Serious: Yes (Life-Threatening, Hospitalization)
  Sender: FDA-Public Use
  Company Number: BR-002147023-NVSC2024BR106615

PATIENT
  Age: 24 Year
  Sex: Female

DRUGS (1)
  1. METHYLPHENIDATE HYDROCHLORIDE [Suspect]
     Active Substance: METHYLPHENIDATE HYDROCHLORIDE
     Indication: Product used for unknown indication
     Dosage: 10 MG
     Route: 065

REACTIONS (8)
  - Apparent death [Unknown]
  - Balance disorder [Unknown]
  - Urinary incontinence [Unknown]
  - Sleep deficit [Unknown]
  - Dysarthria [Unknown]
  - Vital functions abnormal [Unknown]
  - Decreased appetite [Unknown]
  - Dizziness [Unknown]
